FAERS Safety Report 5850421-5 (Version None)
Quarter: 2008Q3

REPORT INFORMATION
  Report Type: 
  Country: None (occurrence: None)
  Receive Date: 20080819
  Receipt Date: 20080811
  Transmission Date: 20090109
  Serious: Yes (Disabling, Other)
  Sender: FDA-Public Use
  Company Number: DE-PFIZER INC-2007107864

PATIENT
  Sex: Male

DRUGS (5)
  1. SORTIS [Suspect]
     Indication: PROPHYLAXIS
     Dosage: DAILY DOSE:10MG
     Route: 048
     Dates: start: 20010101, end: 20040101
  2. LISINOPRIL [Concomitant]
  3. MARCUMAR [Concomitant]
     Route: 048
  4. TRIMIPRAMINE MALEATE [Concomitant]
  5. AMLODIPINE [Concomitant]
     Dates: start: 20040501

REACTIONS (7)
  - HEADACHE [None]
  - IMPAIRED HEALING [None]
  - MUSCLE RUPTURE [None]
  - MYOPATHY [None]
  - SINUSITIS [None]
  - SKIN PLAQUE [None]
  - SPINAL OSTEOARTHRITIS [None]
